FAERS Safety Report 13860888 (Version 1)
Quarter: 2020Q3

REPORT INFORMATION
  Report Type: Report from Study
  Country: CA (occurrence: CA)
  Receive Date: 20170811
  Receipt Date: 20170811
  Transmission Date: 20201104
  Serious: Yes (Other)
  Sender: FDA-Public Use
  Company Number: CA-JNJFOC-20170804216

PATIENT
  Sex: Female

DRUGS (4)
  1. TRABECTEDIN [Suspect]
     Active Substance: TRABECTEDIN
     Indication: OVARIAN CANCER RECURRENT
     Dosage: THREE HOUR INFUSIONS
     Route: 042
  2. TRABECTEDIN [Suspect]
     Active Substance: TRABECTEDIN
     Indication: OVARIAN CANCER RECURRENT
     Dosage: THREE HOUR INFUSIONS
     Route: 042
  3. DEXAMETHASONE. [Concomitant]
     Active Substance: DEXAMETHASONE
     Indication: PROPHYLAXIS OF NAUSEA AND VOMITING
     Route: 042
  4. GRANISETRON [Concomitant]
     Active Substance: GRANISETRON
     Indication: PROPHYLAXIS OF NAUSEA AND VOMITING
     Route: 042

REACTIONS (10)
  - Nausea [Unknown]
  - Fatigue [Unknown]
  - Neutropenia [Unknown]
  - Thrombocytopenia [Unknown]
  - Hepatotoxicity [Unknown]
  - Febrile neutropenia [Unknown]
  - Anaemia [Unknown]
  - Muscular weakness [Unknown]
  - Haematotoxicity [Unknown]
  - Vomiting [Unknown]
